FAERS Safety Report 12952861 (Version 4)
Quarter: 2018Q4

REPORT INFORMATION
  Report Type: Spontaneous
  Country: US (occurrence: US)
  Receive Date: 20161117
  Receipt Date: 20181024
  Transmission Date: 20190204
  Serious: Yes (Disabling, Other)
  Sender: FDA-Public Use
  Company Number: US-PFIZER INC-2016526623

PATIENT
  Age: 26 Year
  Sex: Male

DRUGS (1)
  1. CIPROFLOXACIN. [Suspect]
     Active Substance: CIPROFLOXACIN
     Indication: DIARRHOEA INFECTIOUS
     Dosage: 1500 MG (THREE 500 MG DOSES), UNK

REACTIONS (2)
  - Tendon disorder [Recovered/Resolved]
  - Asthenia [Recovered/Resolved]
